FAERS Safety Report 7650831-X (Version None)
Quarter: 2011Q3

REPORT INFORMATION
  Report Type: 
  Country: None (occurrence: None)
  Receive Date: 20110802
  Receipt Date: 20110727
  Transmission Date: 20111222
  Serious: Yes (Hospitalization)
  Sender: FDA-Public Use
  Company Number: FR-PFIZER INC-2010059458

PATIENT
  Age: 76 Year
  Sex: Female

DRUGS (6)
  1. POTASSIUM CHLORIDE [Suspect]
     Indication: HYPOKALAEMIA
     Dosage: 600 MG, 1X/DAY
     Route: 048
     Dates: start: 20100208, end: 20100217
  2. DURAGESIC-100 [Suspect]
     Indication: PAIN
     Dosage: 12 UG/KG, 1X/DAY
     Route: 062
     Dates: start: 20100214, end: 20100216
  3. NEURONTIN [Suspect]
     Indication: PAIN
     Dosage: UNK
     Route: 048
     Dates: end: 20100217
  4. PANTOPRAZOLE [Suspect]
     Dosage: 40 MG, 1X/DAY
     Route: 048
     Dates: start: 20100207, end: 20100217
  5. LORAZEPAM [Suspect]
     Indication: INSOMNIA
     Dosage: 1 MG, 1X/DAY
     Route: 048
     Dates: start: 20091201
  6. LOVENOX [Suspect]
     Indication: PROPHYLAXIS
     Dosage: UNK
     Route: 058
     Dates: start: 20100211

REACTIONS (3)
  - PRURITUS [None]
  - RASH MACULO-PAPULAR [None]
  - ORAL DISCOMFORT [None]
